FAERS Safety Report 21832274 (Version 2)
Quarter: 2023Q1

REPORT INFORMATION
  Report Type: Spontaneous
  Country: US (occurrence: US)
  Receive Date: 20230106
  Receipt Date: 20230131
  Transmission Date: 20230417
  Serious: No
  Sender: FDA-Public Use
  Company Number: US-KYOWAKIRIN-2023BKK000095

PATIENT

DRUGS (3)
  1. CRYSVITA [Suspect]
     Active Substance: BUROSUMAB-TWZA
     Indication: Hereditary hypophosphataemic rickets
     Dosage: UNK
     Route: 065
     Dates: start: 20210525
  2. CRYSVITA [Suspect]
     Active Substance: BUROSUMAB-TWZA
     Indication: Hereditary hypophosphataemic rickets
     Dosage: 50 MG
     Route: 058
     Dates: start: 20221018
  3. CRYSVITA [Suspect]
     Active Substance: BUROSUMAB-TWZA
     Indication: Hereditary hypophosphataemic rickets
     Dosage: 50 MG
     Route: 058
     Dates: start: 20221018

REACTIONS (1)
  - Blood phosphorus decreased [Recovered/Resolved]

NARRATIVE: CASE EVENT DATE: 20221111
